FAERS Safety Report 23442532 (Version 3)
Quarter: 2024Q2

REPORT INFORMATION
  Report Type: Spontaneous
  Country: US (occurrence: US)
  Receive Date: 20240125
  Receipt Date: 20240624
  Transmission Date: 20240716
  Serious: Yes (Other)
  Sender: FDA-Public Use
  Company Number: US-BRISTOL-MYERS SQUIBB COMPANY-2024-013107

PATIENT
  Age: 66 Year
  Sex: Male

DRUGS (8)
  1. REVLIMID [Suspect]
     Active Substance: LENALIDOMIDE
     Indication: Plasma cell myeloma
     Dosage: FREQ: TAKE 1 CAPSULE BY MOUTH IN THE MORNING FOR 21 DAYS THEN REST FOR 7 DAYS
     Route: 048
     Dates: start: 20240106
  2. ASPIRINE EC [Concomitant]
     Indication: Product used for unknown indication
     Dosage: EC
  3. CYMBALTA [Concomitant]
     Active Substance: DULOXETINE HYDROCHLORIDE
     Indication: Product used for unknown indication
  4. DEXAMETHASONE [Concomitant]
     Active Substance: DEXAMETHASONE
     Indication: Product used for unknown indication
  5. KETOCONAZOLE [Concomitant]
     Active Substance: KETOCONAZOLE
     Indication: Product used for unknown indication
  6. MONTELUKAST SODIUM [Concomitant]
     Active Substance: MONTELUKAST SODIUM
     Indication: Product used for unknown indication
  7. NEXIUM I.V. [Concomitant]
     Active Substance: ESOMEPRAZOLE SODIUM
     Indication: Product used for unknown indication
  8. THALOMID [Concomitant]
     Active Substance: THALIDOMIDE
     Indication: Product used for unknown indication

REACTIONS (4)
  - Arthralgia [Unknown]
  - Sleep disorder [Unknown]
  - Arthropathy [Unknown]
  - Depression [Unknown]
